FAERS Safety Report 21547630 (Version 1)
Quarter: 2022Q4

REPORT INFORMATION
  Report Type: Report from Study
  Country: US (occurrence: None)
  Receive Date: 20221103
  Receipt Date: 20221103
  Transmission Date: 20230113
  Serious: Yes (Hospitalization)
  Sender: FDA-Public Use
  Company Number: 2022A360211

PATIENT
  Sex: Female

DRUGS (1)
  1. LYNPARZA [Suspect]
     Active Substance: OLAPARIB
     Indication: Breast cancer
     Route: 048
     Dates: start: 20211022

REACTIONS (6)
  - Diverticulitis [Unknown]
  - Neutropenia [Unknown]
  - COVID-19 [Unknown]
  - Back pain [Unknown]
  - Abdominal pain upper [Unknown]
  - Constipation [Unknown]
